FAERS Safety Report 7967982-2 (Version None)
Quarter: 2011Q4

REPORT INFORMATION
  Report Type: 
  Country: None (occurrence: None)
  Receive Date: 20111209
  Receipt Date: 20111201
  Transmission Date: 20120403
  Serious: Yes (Death, Other)
  Sender: FDA-Public Use
  Company Number: ES-GENZYME-CLOF-1001930

PATIENT
  Age: 5 Month
  Sex: Male

DRUGS (5)
  1. SEPTRA [Concomitant]
     Indication: PROPHYLAXIS
     Dosage: 6.4 ML, BID
     Route: 048
     Dates: start: 20110309
  2. VFEND [Concomitant]
     Indication: PROPHYLAXIS
     Dosage: 2 ML, 40MG/ML
     Route: 048
     Dates: start: 20110311
  3. EVOLTRA [Suspect]
     Indication: ACUTE MYELOID LEUKAEMIA
     Dosage: 7 MG, QD
     Route: 042
     Dates: start: 20110316, end: 20110320
  4. DIFLUCAN [Concomitant]
     Indication: PROPHYLAXIS
     Dosage: 0.6 ML, 200 MG/5ML
     Route: 048
     Dates: start: 20110309, end: 20110310
  5. CYTARABINE [Suspect]
     Indication: ACUTE MYELOID LEUKAEMIA
     Dosage: 175 MG, QD
     Route: 042
     Dates: start: 20110315, end: 20110319

REACTIONS (2)
  - HEPATITIS [None]
  - ACUTE MYELOID LEUKAEMIA [None]
